FAERS Safety Report 6415491-4 (Version None)
Quarter: 2009Q4

REPORT INFORMATION
  Report Type: 
  Country: None (occurrence: None)
  Receive Date: 20091027
  Receipt Date: 20091019
  Transmission Date: 20100525
  Serious: Yes (Other)
  Sender: FDA-Public Use
  Company Number: US-JNJFOC-20091006290

PATIENT
  Age: 9 Year
  Sex: Female

DRUGS (3)
  1. CONCERTA [Suspect]
     Indication: ATTENTION DEFICIT/HYPERACTIVITY DISORDER
     Route: 048
     Dates: start: 20060401, end: 20081201
  2. SYNTHROID [Concomitant]
     Route: 065
  3. VITAMIN [Concomitant]
     Route: 065

REACTIONS (6)
  - ACNE [None]
  - ANAEMIA [None]
  - ANGER [None]
  - DISTURBANCE IN ATTENTION [None]
  - HEREDITARY FRUCTOSE INTOLERANCE [None]
  - POOR QUALITY SLEEP [None]
